FAERS Safety Report 4710024-2 (Version None)
Quarter: 2005Q3

REPORT INFORMATION
  Report Type: 
  Country: None (occurrence: None)
  Receive Date: 20050708
  Receipt Date: 20050629
  Transmission Date: 20060218
  Serious: Yes (Other)
  Sender: FDA-Public Use
  Company Number: PHEH2005US07316

PATIENT
  Sex: Female

DRUGS (2)
  1. ZOMETA [Suspect]
     Dosage: UNK, QMO
     Route: 042
  2. PAMIDRONATE DISODIUM [Suspect]
     Dosage: UNK, QMO
     Route: 042

REACTIONS (1)
  - ASEPTIC NECROSIS BONE [None]
